FAERS Safety Report 8254595-0 (Version None)
Quarter: 2012Q1

REPORT INFORMATION
  Report Type: 
  Country: None (occurrence: None)
  Receive Date: 20120329
  Receipt Date: 20120319
  Transmission Date: 20120608
  Serious: Yes (Hospitalization)
  Sender: FDA-Public Use
  Company Number: JPI-P-007070

PATIENT
  Age: 41 Year
  Sex: Female

DRUGS (12)
  1. OXYCODONE HYDROCHLORIDE [Concomitant]
  2. PANTOPRAZOLE [Concomitant]
  3. HYDROXYCHLOROQUINE SULFATE [Concomitant]
  4. FENTANYL CITRATE [Concomitant]
  5. SERTRALINE HYDROCHLORIDE [Concomitant]
  6. XYREM [Suspect]
     Indication: SLEEP DISORDER
     Dosage: 7.5;6 GM (3.75;3 GM, 2 IN 1 D), ORAL
     Route: 048
     Dates: start: 20080422
  7. CELECOXIB [Concomitant]
  8. ETANERCEPT [Concomitant]
  9. TOPIRAMATE [Concomitant]
  10. SUMATRIPTAN SUCCINATE [Concomitant]
  11. PROMETHAZINE HCL [Concomitant]
  12. METHOTREXATE [Concomitant]

REACTIONS (1)
  - CHOLELITHIASIS [None]
